FAERS Safety Report 7051153-0 (Version None)
Quarter: 2010Q4

REPORT INFORMATION
  Report Type: 
  Country: None (occurrence: None)
  Receive Date: 20101019
  Receipt Date: 20101008
  Transmission Date: 20110411
  Serious: Yes (Hospitalization)
  Sender: FDA-Public Use
  Company Number: KP-PERRIGO-10KP013891

PATIENT
  Sex: Male

DRUGS (1)
  1. DOXYLAMINE SUCCINATE 25 MG 441 [Suspect]
     Indication: SUICIDAL IDEATION
     Dosage: UNKNOWN
     Route: 048

REACTIONS (2)
  - CONVULSION [None]
  - INTENTIONAL OVERDOSE [None]
